FAERS Safety Report 24232694 (Version 2)
Quarter: 2024Q3

REPORT INFORMATION
  Report Type: Report from Study
  Country: US (occurrence: US)
  Receive Date: 20240821
  Receipt Date: 20240830
  Transmission Date: 20241017
  Serious: No
  Sender: ALEXION PHARMACEUTICALS
  Company Number: US-AstraZeneca-CH-00679791A

PATIENT
  Sex: Female

DRUGS (2)
  1. SOLIRIS [Suspect]
     Active Substance: ECULIZUMAB
     Indication: Paroxysmal nocturnal haemoglobinuria
     Dosage: UNK
     Route: 065
  2. INFLUENZA VIRUS VACCINE [Suspect]
     Active Substance: INFLUENZA VIRUS VACCINE
     Indication: Immunisation
     Route: 065
     Dates: start: 2019

REACTIONS (5)
  - Alopecia [Recovering/Resolving]
  - Vascular pain [Unknown]
  - Vein discolouration [Unknown]
  - Illness [Unknown]
  - Skin discolouration [Unknown]

NARRATIVE: CASE EVENT DATE: 20190101
